FAERS Safety Report 23112274 (Version 1)
Quarter: 2023Q4

REPORT INFORMATION
  Report Type: Report from Study
  Country: US (occurrence: US)
  Receive Date: 20231026
  Receipt Date: 20231026
  Transmission Date: 20240110
  Serious: Yes (Other)
  Sender: FDA-Public Use
  Company Number: US-ABBVIE-5463100

PATIENT
  Age: 92 Year
  Sex: Female
  Weight: 46.719 kg

DRUGS (2)
  1. CREON [Suspect]
     Active Substance: PANCRELIPASE AMYLASE\PANCRELIPASE LIPASE\PANCRELIPASE PROTEASE
     Indication: Pancreatic failure
     Dosage: ONE CAPSULE WITH MEALS?FORM STRENGTH: 36000 UNIT
     Route: 048
     Dates: start: 202309
  2. CREON [Suspect]
     Active Substance: PANCRELIPASE AMYLASE\PANCRELIPASE LIPASE\PANCRELIPASE PROTEASE
     Indication: Pancreatic failure
     Dosage: ONE CAPSULE PER MEAL?FORM STRENGTH: 36000 UNIT
     Route: 048
     Dates: start: 2020, end: 202309

REACTIONS (4)
  - Ileus [Unknown]
  - Diarrhoea [Recovered/Resolved]
  - Drug ineffective [Unknown]
  - Blood cholesterol increased [Unknown]

NARRATIVE: CASE EVENT DATE: 20230901
